FAERS Safety Report 8594714-X (Version None)
Quarter: 2012Q3

REPORT INFORMATION
  Report Type: 
  Country: None (occurrence: None)
  Receive Date: 20120815
  Receipt Date: 20120801
  Transmission Date: 20120928
  Serious: Yes (Disabling, Other)
  Sender: FDA-Public Use
  Company Number: GB-MYLANLABS-2012S1015798

PATIENT
  Age: 70 Year
  Sex: Female
  Weight: 70 kg

DRUGS (11)
  1. ALENDRONATE SODIUM [Concomitant]
     Indication: OSTEOPOROSIS
     Route: 048
     Dates: start: 20090223
  2. ZAPAIN [Concomitant]
     Indication: PAIN
     Route: 048
     Dates: start: 20100628
  3. ADCAL D3 [Concomitant]
     Indication: OSTEOPOROSIS
  4. ROSUVASTATIN [Concomitant]
     Indication: CARDIAC DISORDER
     Dates: start: 20110503
  5. FOLIC ACID [Concomitant]
     Indication: PRODUCT USED FOR UNKNOWN INDICATION
     Route: 048
     Dates: start: 20080807
  6. METOCLOPRAMIDE [Concomitant]
     Indication: PRODUCT USED FOR UNKNOWN INDICATION
     Dates: start: 20090303, end: 20120523
  7. RANITIDINE [Suspect]
     Indication: DYSPEPSIA
     Route: 048
     Dates: start: 20110916, end: 20120530
  8. BISOPROLOL [Concomitant]
     Indication: CARDIAC DISORDER
     Route: 048
     Dates: start: 20110401
  9. RAMIPRIL [Concomitant]
     Indication: CARDIAC DISORDER
     Route: 048
     Dates: start: 20110401
  10. ASPIRIN [Concomitant]
     Indication: CARDIAC DISORDER
     Route: 048
     Dates: start: 20110225
  11. CALCICHEW D3 [Concomitant]
     Indication: OSTEOPOROSIS
     Route: 048
     Dates: start: 20090223

REACTIONS (3)
  - DEPRESSION [None]
  - HALLUCINATION, VISUAL [None]
  - ANXIETY [None]
